FAERS Safety Report 5062151-0 (Version None)
Quarter: 2006Q3

REPORT INFORMATION
  Report Type: 
  Country: None (occurrence: None)
  Receive Date: 20060726
  Receipt Date: 20060717
  Transmission Date: 20061208
  Serious: Yes (Other)
  Sender: FDA-Public Use
  Company Number: PHBS2006NL10559

PATIENT
  Age: 31 Year
  Sex: Female

DRUGS (1)
  1. NEORAL [Suspect]
     Dosage: 100 MG/D
     Route: 048
     Dates: start: 20020701, end: 20020801

REACTIONS (4)
  - EXCESSIVE GRANULATION TISSUE [None]
  - SCAR [None]
  - SURGERY [None]
  - WOUND [None]
